FAERS Safety Report 24419392 (Version 4)
Quarter: 2024Q4

REPORT INFORMATION
  Report Type: Spontaneous
  Country: PH (occurrence: PH)
  Receive Date: 20241009
  Receipt Date: 20241204
  Transmission Date: 20250115
  Serious: Yes (Life-Threatening)
  Sender: HETERO
  Company Number: PH-HETERO-HET2024PH03618

PATIENT
  Age: 57 Year
  Sex: Female
  Weight: 79 kg

DRUGS (9)
  1. DABIGATRAN ETEXILATE [Suspect]
     Active Substance: DABIGATRAN ETEXILATE
     Indication: Atrial fibrillation
     Dosage: 150 MILLIGRAM
     Route: 048
     Dates: start: 20240627, end: 20240821
  2. DABIGATRAN ETEXILATE [Suspect]
     Active Substance: DABIGATRAN ETEXILATE
     Dosage: 1 DOSAGE FORM
     Route: 065
     Dates: start: 20240903
  3. CARVEDILOL [Concomitant]
     Active Substance: CARVEDILOL
     Indication: Coronary artery disease
     Dosage: 6.25 MILLIGRAM, BID
     Route: 065
     Dates: start: 2022
  4. GLUBITOR [Concomitant]
     Indication: Coronary artery disease
     Dosage: 80 MILLIGRAM, BID
     Route: 065
     Dates: start: 2022
  5. JARDIANCE [Concomitant]
     Active Substance: EMPAGLIFLOZIN
     Indication: Coronary artery disease
     Dosage: 10 MILLIGRAM, QD
     Route: 065
     Dates: start: 2022
  6. SITAZIT M [Concomitant]
     Indication: Coronary artery disease
     Dosage: 50/1-GRAM OD (ONCE DAILY)
     Route: 065
     Dates: start: 2022
  7. ATORVASTATIN [Concomitant]
     Active Substance: ATORVASTATIN
     Indication: Coronary artery disease
     Dosage: 40 MILLIGRAM, QD
     Route: 065
     Dates: start: 2022
  8. TRIMETAZIDINE [Concomitant]
     Active Substance: TRIMETAZIDINE
     Indication: Coronary artery disease
     Dosage: 35 MILLIGRAM, BID
     Route: 065
  9. DIGOXIN [Concomitant]
     Active Substance: DIGOXIN
     Indication: Coronary artery disease
     Dosage: 250 MICROGRAM, QD
     Route: 065

REACTIONS (10)
  - Chest discomfort [Recovered/Resolved]
  - Loss of consciousness [Recovered/Resolved]
  - Fall [Recovered/Resolved]
  - Mouth injury [Recovered/Resolved]
  - Tooth loss [Recovered/Resolved]
  - Tooth disorder [Recovered/Resolved]
  - Hyperchlorhydria [Recovered/Resolved]
  - Nausea [Recovered/Resolved]
  - Vomiting [Recovered/Resolved]
  - Dizziness [Recovered/Resolved]

NARRATIVE: CASE EVENT DATE: 20240819
